APPROVED DRUG PRODUCT: OGEN
Active Ingredient: ESTROPIPATE
Strength: 1.5MG/GM
Dosage Form/Route: CREAM;VAGINAL
Application: A084710 | Product #001
Applicant: PHARMACIA AND UPJOHN CO
Approved: Approved Prior to Jan 1, 1982 | RLD: No | RS: No | Type: DISCN